FAERS Safety Report 18498404 (Version 1)
Quarter: 2020Q4

REPORT INFORMATION
  Report Type: Report from Study
  Country: None (occurrence: US)
  Receive Date: 20201113
  Receipt Date: 20201113
  Transmission Date: 20210114
  Serious: Yes (Hospitalization)
  Sender: FDA-Public Use
  Company Number: US-ABBVIE-20K-163-3591537-00

PATIENT
  Age: 21 Year
  Sex: Female

DRUGS (1)
  1. HUMIRA [Suspect]
     Active Substance: ADALIMUMAB
     Indication: RHEUMATOID ARTHRITIS
     Route: 058
     Dates: start: 20200716

REACTIONS (19)
  - Urinary tract infection [Unknown]
  - Loss of personal independence in daily activities [Unknown]
  - General physical health deterioration [Unknown]
  - Pain in extremity [Recovered/Resolved]
  - Intentional overdose [Unknown]
  - Nightmare [Unknown]
  - Depression [Unknown]
  - Pain [Unknown]
  - Arthralgia [Recovered/Resolved]
  - Anxiety [Not Recovered/Not Resolved]
  - Sputum discoloured [Unknown]
  - Panic reaction [Not Recovered/Not Resolved]
  - Depressed mood [Unknown]
  - Gait disturbance [Unknown]
  - Feeling abnormal [Unknown]
  - Arthralgia [Not Recovered/Not Resolved]
  - Sensation of foreign body [Unknown]
  - Productive cough [Unknown]
  - Poor quality sleep [Unknown]

NARRATIVE: CASE EVENT DATE: 2020
